FAERS Safety Report 7451440-8 (Version None)
Quarter: 2011Q2

REPORT INFORMATION
  Report Type: 
  Country: None (occurrence: None)
  Receive Date: 20110502
  Receipt Date: 20101022
  Transmission Date: 20111010
  Serious: Yes (Hospitalization)
  Sender: FDA-Public Use
  Company Number: A0890346A

PATIENT
  Sex: Female
  Weight: 122.7 kg

DRUGS (6)
  1. ZYRTEC [Concomitant]
  2. AMBIEN [Concomitant]
  3. VYTORIN [Concomitant]
  4. AVANDIA [Suspect]
     Indication: DIABETES MELLITUS
     Dosage: 8MG PER DAY
     Route: 048
     Dates: start: 19990101, end: 20080101
  5. SYNTHROID [Concomitant]
  6. CELEBREX [Concomitant]

REACTIONS (6)
  - CARDIAC FAILURE [None]
  - ATRIAL FIBRILLATION [None]
  - CARDIAC FAILURE CONGESTIVE [None]
  - CARDIOVASCULAR DISORDER [None]
  - SYNCOPE [None]
  - CORONARY ARTERY DISEASE [None]
